FAERS Safety Report 5693113-8 (Version None)
Quarter: 2008Q2

REPORT INFORMATION
  Report Type: 
  Country: None (occurrence: None)
  Receive Date: 20080402
  Receipt Date: 20080402
  Transmission Date: 20081010
  Serious: Yes (Life-Threatening, Other)
  Sender: FDA-Public Use
  Company Number: None

PATIENT
  Sex: Male
  Weight: 84.8226 kg

DRUGS (2)
  1. SINGULAIR [Suspect]
     Indication: ASTHMA
     Dosage: 10MG 1 DAILY IN THE AM PO
     Route: 048
     Dates: start: 20080111, end: 20080326
  2. SINGULAIR [Suspect]
     Indication: MULTIPLE ALLERGIES
     Dosage: 10MG 1 DAILY IN THE AM PO
     Route: 048
     Dates: start: 20080111, end: 20080326

REACTIONS (6)
  - ACTIVITIES OF DAILY LIVING IMPAIRED [None]
  - BIPOLAR DISORDER [None]
  - DEPRESSION [None]
  - IMPAIRED WORK ABILITY [None]
  - MALAISE [None]
  - SUICIDAL IDEATION [None]
